FAERS Safety Report 12147197 (Version 1)
Quarter: 2016Q1

REPORT INFORMATION
  Report Type: Spontaneous
  Country: US (occurrence: US)
  Receive Date: 20160304
  Receipt Date: 20160304
  Transmission Date: 20160526
  Serious: No
  Sender: FDA-Public Use
  Company Number: US-TAKEDA-2015TUS002906

PATIENT
  Age: 66 Year
  Sex: Female
  Weight: 44.44 kg

DRUGS (2)
  1. OXYBUTYNIN [Concomitant]
     Active Substance: OXYBUTYNIN
     Indication: HYPERTONIC BLADDER
     Dosage: 10 MG, UNK
     Dates: end: 2015
  2. DEXILANT [Suspect]
     Active Substance: DEXLANSOPRAZOLE
     Indication: GASTROOESOPHAGEAL REFLUX DISEASE
     Dosage: 60 MG, QD
     Route: 048
     Dates: start: 20150203, end: 20150303

REACTIONS (7)
  - Hypertonic bladder [Recovering/Resolving]
  - Dyspepsia [Recovering/Resolving]
  - Drug ineffective [Recovered/Resolved]
  - Bone pain [Recovered/Resolved]
  - Condition aggravated [Recovering/Resolving]
  - Myalgia [Recovering/Resolving]
  - Flatulence [Recovering/Resolving]

NARRATIVE: CASE EVENT DATE: 201502
